FAERS Safety Report 9350816 (Version 2)
Quarter: 2014Q2

REPORT INFORMATION
  Report Type: Report from Study
  Country: CA (occurrence: CA)
  Receive Date: 20130617
  Receipt Date: 20140404
  Transmission Date: 20141212
  Serious: Yes (Death, Other)
  Sender: FDA-Public Use
  Company Number: CA-ROCHE-1235372

PATIENT
  Age: 84 Year
  Sex: Male
  Weight: 72.64 kg

DRUGS (8)
  1. RANIBIZUMAB [Suspect]
     Indication: PRODUCT USED FOR UNKNOWN INDICATION
     Route: 050
     Dates: start: 20121001
  2. RANIBIZUMAB [Suspect]
     Route: 065
     Dates: start: 20130108, end: 20130108
  3. TRANDATE [Concomitant]
     Route: 065
     Dates: start: 20120815
  4. FERROUS SULPHATE [Concomitant]
     Route: 065
     Dates: start: 20120815
  5. DOCUSATE SODIUM [Concomitant]
     Route: 065
     Dates: start: 20120815
  6. EFFEXOR [Concomitant]
     Route: 065
     Dates: start: 20120815
  7. LIPITOR [Concomitant]
     Route: 065
     Dates: start: 20120815
  8. DIAMICRON [Concomitant]

REACTIONS (3)
  - Convulsion [Fatal]
  - Myocardial infarction [Unknown]
  - Pulmonary oedema [Unknown]
